FAERS Safety Report 9472510 (Version 1)
Quarter: 2013Q3

REPORT INFORMATION
  Report Type: Spontaneous
  Country: US (occurrence: None)
  Receive Date: 20130821
  Receipt Date: 20130821
  Transmission Date: 20140515
  Serious: No
  Sender: FDA-Public Use
  Company Number: None

PATIENT
  Age: 57 Year
  Sex: Female

DRUGS (2)
  1. DILANTIN [Suspect]
  2. DEPAKOTE [Suspect]
     Indication: EPILEPSY

REACTIONS (4)
  - Weight increased [None]
  - Therapeutic response decreased [None]
  - Ill-defined disorder [None]
  - Depressed level of consciousness [None]
